FAERS Safety Report 20783722 (Version 3)
Quarter: 2022Q2

REPORT INFORMATION
  Report Type: Other
  Country: DE (occurrence: None)
  Receive Date: 20220504
  Receipt Date: 20220525
  Transmission Date: 20220721
  Serious: Yes (Other)
  Sender: FDA-Public Use
  Company Number: DE-ROCHE-2451326

PATIENT
  Age: 31 Year
  Sex: Female

DRUGS (13)
  1. OCREVUS [Suspect]
     Active Substance: OCRELIZUMAB
     Indication: Relapsing-remitting multiple sclerosis
     Route: 042
     Dates: start: 20181023
  2. OCREVUS [Suspect]
     Active Substance: OCRELIZUMAB
     Dosage: 4TH INFUSION
     Route: 042
     Dates: start: 20191016
  3. OCREVUS [Suspect]
     Active Substance: OCRELIZUMAB
     Dosage: 3RD MAINTENANCE DOSE
     Route: 042
     Dates: start: 20200401
  4. OCREVUS [Suspect]
     Active Substance: OCRELIZUMAB
     Dosage: 4TH MAINTENANCE DOSE
     Route: 042
     Dates: start: 20200930
  5. OCREVUS [Suspect]
     Active Substance: OCRELIZUMAB
     Dosage: 5TH MAINTENANCE DOSE
     Route: 042
     Dates: start: 20210317
  6. PNEUMOCOCCAL VACCINE POLYVALENT NOS [Suspect]
     Active Substance: PNEUMOCOCCAL VACCINE POLYVALENT
     Indication: Product used for unknown indication
     Route: 065
     Dates: start: 202002
  7. EBASTINE [Suspect]
     Active Substance: EBASTINE
     Indication: Premedication
     Dosage: ANTIHISTAMINE
     Route: 065
     Dates: start: 20200401
  8. EBASTINE [Suspect]
     Active Substance: EBASTINE
     Dosage: ANTIHISTAMINE?FILM-COATED TABLET
     Route: 065
     Dates: start: 20200409, end: 20200411
  9. COMIRNATY [Suspect]
     Active Substance: TOZINAMERAN
     Indication: Product used for unknown indication
     Route: 065
     Dates: start: 20210609
  10. COMIRNATY [Suspect]
     Active Substance: TOZINAMERAN
     Route: 065
     Dates: start: 20210630
  11. COMIRNATY [Suspect]
     Active Substance: TOZINAMERAN
     Route: 065
     Dates: start: 20211223
  12. VITAMIN D3 [Concomitant]
     Active Substance: CHOLECALCIFEROL
  13. SOTROVIMAB [Concomitant]
     Active Substance: SOTROVIMAB
     Dates: start: 20220509

REACTIONS (17)
  - Multiple sclerosis relapse [Recovered/Resolved with Sequelae]
  - Fatigue [Recovered/Resolved]
  - Fatigue [Recovered/Resolved]
  - Fatigue [Recovered/Resolved]
  - Fatigue [Recovered/Resolved]
  - Headache [Recovered/Resolved]
  - Headache [Recovered/Resolved]
  - Headache [Recovered/Resolved]
  - Muscular weakness [Recovered/Resolved]
  - Body temperature increased [Recovered/Resolved]
  - Heart rate increased [Recovered/Resolved]
  - Photosensitivity reaction [Recovered/Resolved]
  - SARS-CoV-2 antibody test negative [Not Recovered/Not Resolved]
  - Pain in extremity [Recovered/Resolved]
  - Nasopharyngitis [Recovered/Resolved]
  - Fatigue [Recovered/Resolved]
  - COVID-19 [Not Recovered/Not Resolved]

NARRATIVE: CASE EVENT DATE: 20181101
